FAERS Safety Report 5625040-6 (Version None)
Quarter: 2008Q1

REPORT INFORMATION
  Report Type: 
  Country: None (occurrence: None)
  Receive Date: 20080213
  Receipt Date: 20080201
  Transmission Date: 20080703
  Serious: Yes (Other)
  Sender: FDA-Public Use
  Company Number: US-PFIZER INC-2007103697

PATIENT
  Sex: Female
  Weight: 79.8 kg

DRUGS (9)
  1. CHANTIX [Suspect]
     Indication: EX-SMOKER
     Dosage: TEXT:TWICE A DAY EVERY DAY
     Dates: start: 20070401, end: 20070801
  2. CHANTIX [Suspect]
     Indication: NICOTINE DEPENDENCE
  3. GABAPENTIN [Suspect]
     Indication: PAIN IN EXTREMITY
  4. ZYRTEC [Concomitant]
     Indication: MULTIPLE ALLERGIES
  5. NASONEX [Concomitant]
     Indication: MULTIPLE ALLERGIES
  6. COSOPT [Concomitant]
  7. NEXIUM [Concomitant]
     Indication: GASTROOESOPHAGEAL REFLUX DISEASE
  8. HYOSCYAMINE [Concomitant]
  9. TRIAMTERENE AND HYDROCHLOROTHIAZID ^HARRIS^ [Concomitant]

REACTIONS (36)
  - ABDOMINAL DISTENSION [None]
  - ABNORMAL DREAMS [None]
  - CARPAL TUNNEL SYNDROME [None]
  - CHOKING [None]
  - CONSTIPATION [None]
  - DRUG DOSE OMISSION [None]
  - FEELING HOT [None]
  - FINGER DEFORMITY [None]
  - FLUID RETENTION [None]
  - FOOD CRAVING [None]
  - FOOT DEFORMITY [None]
  - GAIT DISTURBANCE [None]
  - HEADACHE [None]
  - HOT FLUSH [None]
  - HYPOAESTHESIA [None]
  - INSOMNIA [None]
  - IRRITABILITY [None]
  - IRRITABLE BOWEL SYNDROME [None]
  - JOINT RANGE OF MOTION DECREASED [None]
  - MOBILITY DECREASED [None]
  - MUSCULAR WEAKNESS [None]
  - MUSCULOSKELETAL DISORDER [None]
  - MUSCULOSKELETAL STIFFNESS [None]
  - NAUSEA [None]
  - NERVE COMPRESSION [None]
  - NEURALGIA [None]
  - NEUROPATHY PERIPHERAL [None]
  - OEDEMA PERIPHERAL [None]
  - OSTEOARTHRITIS [None]
  - OVERDOSE [None]
  - PAIN IN EXTREMITY [None]
  - PARAESTHESIA [None]
  - SENSORY DISTURBANCE [None]
  - SOMNOLENCE [None]
  - TRIGGER FINGER [None]
  - WEIGHT INCREASED [None]
